FAERS Safety Report 24409047 (Version 1)
Quarter: 2024Q4

REPORT INFORMATION
  Report Type: Report from Study
  Country: NL (occurrence: NL)
  Receive Date: 20241008
  Receipt Date: 20241008
  Transmission Date: 20250115
  Serious: Yes (Other)
  Sender: ABBVIE
  Company Number: NL-ABBVIE-5952291

PATIENT
  Age: 82 Year
  Sex: Male

DRUGS (12)
  1. CARBIDOPA\LEVODOPA [Suspect]
     Active Substance: CARBIDOPA\LEVODOPA
     Indication: Parkinson^s disease
     Dosage: MD: 10.0ML, CD: 3.7ML/H, ED: 3.00ML. DURATION: REMAINS AT 16 HOURS
     Route: 050
     Dates: start: 20240716, end: 20240717
  2. CARBIDOPA\LEVODOPA [Suspect]
     Active Substance: CARBIDOPA\LEVODOPA
     Dosage: MD: 13.0ML, CD: 3.7ML/H, ED: 3.00ML. DURATION: REMAINS AT 16 HOURS
     Route: 050
     Dates: start: 20240725, end: 20240730
  3. CARBIDOPA\LEVODOPA [Suspect]
     Active Substance: CARBIDOPA\LEVODOPA
     Dosage: MD: 13.0ML, CD: 3.7ML/H, ED: 3.00ML. DURATION: REMAINS AT 16 HOURS
     Route: 050
     Dates: start: 20240806, end: 20240927
  4. CARBIDOPA\LEVODOPA [Suspect]
     Active Substance: CARBIDOPA\LEVODOPA
     Dosage: MD: 10.0ML, CD: 3.7ML/H, ED: 3.00ML. DURATION: REMAINS AT 16 HOURS
     Route: 050
     Dates: start: 20240715, end: 20240716
  5. CARBIDOPA\LEVODOPA [Suspect]
     Active Substance: CARBIDOPA\LEVODOPA
     Dosage: MD: 8.0ML, CD: 2.8ML/H, ED: 1.00ML. DURATION: REMAINS AT 16 HOURS
     Route: 050
     Dates: start: 20240708, end: 20240715
  6. CARBIDOPA\LEVODOPA [Suspect]
     Active Substance: CARBIDOPA\LEVODOPA
     Dosage: MD: 13.0ML, CD: 3.7ML/H, ED: 3.00ML. DURATION: REMAINS AT 16 HOURS
     Route: 050
     Dates: start: 20240927
  7. CARBIDOPA\LEVODOPA [Suspect]
     Active Substance: CARBIDOPA\LEVODOPA
     Dosage: MD: 13.0ML, CD: 3.7ML/H, ED: 3.00ML. DURATION: REMAINS AT 16 HOURS
     Route: 050
     Dates: start: 20240717, end: 20240725
  8. CARBIDOPA\LEVODOPA [Suspect]
     Active Substance: CARBIDOPA\LEVODOPA
     Dosage: MD: 13.0ML, CD: 3.7ML/H, ED: 3.00ML. DURATION: REMAINS AT 16 HOURS
     Route: 050
     Dates: start: 20240730, end: 20240806
  9. BENSERAZIDE HYDROCHLORIDE\LEVODOPA [Concomitant]
     Active Substance: BENSERAZIDE HYDROCHLORIDE\LEVODOPA
     Indication: Parkinson^s disease
     Dosage: FORM STRENGTH: 125 MILLIGRAM. FREQUENCY: 2
     Route: 048
     Dates: start: 20150701, end: 20240708
  10. Acetylcardio [Concomitant]
     Indication: Postoperative care
     Route: 048
     Dates: start: 20110701
  11. SINEMET [Concomitant]
     Active Substance: CARBIDOPA\LEVODOPA
     Indication: Parkinson^s disease
     Dosage: FORM STRENGTH: 125 MILLIGRAM. FREQUENCY: 2-1-1-2
     Route: 048
     Dates: start: 20150701, end: 20150708
  12. SINEMET [Concomitant]
     Active Substance: CARBIDOPA\LEVODOPA
     Indication: Parkinson^s disease
     Dosage: FORM STRENGTH: 62.5 MILLIGRAM. FREQUENCY: 1-1
     Route: 048
     Dates: start: 20150701, end: 20240708

REACTIONS (5)
  - Hip arthroplasty [Recovering/Resolving]
  - Dyskinesia [Not Recovered/Not Resolved]
  - Sleep disorder [Not Recovered/Not Resolved]
  - Bradykinesia [Not Recovered/Not Resolved]
  - Aphasia [Not Recovered/Not Resolved]

NARRATIVE: CASE EVENT DATE: 20240101
